FAERS Safety Report 5853104-0 (Version None)
Quarter: 2008Q3

REPORT INFORMATION
  Report Type: 
  Country: None (occurrence: None)
  Receive Date: 20080818
  Receipt Date: 20080609
  Transmission Date: 20090109
  Serious: No
  Sender: FDA-Public Use
  Company Number: WAES 0806USA01550

PATIENT
  Age: 68 Year
  Sex: Female

DRUGS (2)
  1. JANUVIA [Suspect]
     Indication: DIABETES MELLITUS
     Dosage: 100 MG DAILY PO
     Route: 048
  2. GLIPIZIDE [Suspect]
     Dosage: 2.5 MG  PO
     Route: 048

REACTIONS (2)
  - HYPOGLYCAEMIA [None]
  - MALNUTRITION [None]
